FAERS Safety Report 18480530 (Version 11)
Quarter: 2025Q1

REPORT INFORMATION
  Report Type: Spontaneous
  Country: US (occurrence: US)
  Receive Date: 20201109
  Receipt Date: 20250117
  Transmission Date: 20250409
  Serious: Yes (Other)
  Sender: PFIZER
  Company Number: US-PFIZER INC-2020437486

PATIENT
  Age: 86 Year
  Sex: Female

DRUGS (13)
  1. XELJANZ XR [Suspect]
     Active Substance: TOFACITINIB CITRATE
     Dosage: 11 MG, DAILY
  2. LIDOCAINE [Concomitant]
     Active Substance: LIDOCAINE
  3. ZOLPIDEM [Concomitant]
     Active Substance: ZOLPIDEM TARTRATE
  4. AMLODIPINE [Concomitant]
     Active Substance: AMLODIPINE BESYLATE
  5. AZULFIDINE [Concomitant]
     Active Substance: SULFASALAZINE
  6. GABAPENTIN [Concomitant]
     Active Substance: GABAPENTIN
  7. CLOPIDOGREL [Concomitant]
     Active Substance: CLOPIDOGREL BISULFATE
  8. ATORVASTATIN [Concomitant]
     Active Substance: ATORVASTATIN
  9. TRAVATAN [Concomitant]
     Active Substance: TRAVOPROST
  10. DICLOFENAC EPOLAMINE [Concomitant]
     Active Substance: DICLOFENAC EPOLAMINE
  11. FOLIC ACID [Concomitant]
     Active Substance: FOLIC ACID
  12. IRON [Concomitant]
     Active Substance: IRON
  13. VITAMIN B COMPLEX [Concomitant]
     Active Substance: CYANOCOBALAMIN\DEXPANTHENOL\NIACINAMIDE\PYRIDOXINE HYDROCHLORIDE\RIBOFLAVIN 5^-PHOSPHATE SODIUM\THIA

REACTIONS (3)
  - Macular degeneration [Unknown]
  - Blindness [Recovering/Resolving]
  - Retinal injury [Unknown]
